FAERS Safety Report 24771640 (Version 2)
Quarter: 2024Q4

REPORT INFORMATION
  Report Type: Spontaneous
  Country: TW (occurrence: TW)
  Receive Date: 20241224
  Receipt Date: 20241226
  Transmission Date: 20250115
  Serious: Yes (Other)
  Sender: MERCK
  Company Number: TW-009507513-2412TWN006118

PATIENT
  Age: 52 Year
  Sex: Male

DRUGS (6)
  1. PEMBROLIZUMAB [Suspect]
     Active Substance: PEMBROLIZUMAB
     Indication: Squamous cell carcinoma
     Dates: start: 20220302, end: 20220323
  2. CISPLATIN [Suspect]
     Active Substance: CISPLATIN
     Indication: Squamous cell carcinoma
     Dosage: 80 MILLIGRAM/SQ. METER
     Dates: start: 20220311, end: 20220730
  3. AFATINIB [Suspect]
     Active Substance: AFATINIB
     Indication: Squamous cell carcinoma
     Dosage: 40 MILLIGRAM, QD
     Route: 048
     Dates: start: 20220308
  4. CETUXIMAB [Suspect]
     Active Substance: CETUXIMAB
     Indication: Squamous cell carcinoma
     Dosage: 400MG/M2 LOADING, 250MG/M2; QW
     Dates: start: 20220331, end: 20220803
  5. CETUXIMAB [Suspect]
     Active Substance: CETUXIMAB
     Dosage: 250 MILLIGRAM/SQ. METER, QOW
     Dates: start: 20220817, end: 20230831
  6. FLUOROURACIL [Suspect]
     Active Substance: FLUOROURACIL
     Indication: Squamous cell carcinoma
     Dosage: 1000MG/M2 X 3 DAYS
     Dates: start: 20220311, end: 20220730

REACTIONS (6)
  - Tumour haemorrhage [Recovered/Resolved]
  - Mouth swelling [Unknown]
  - Eye swelling [Unknown]
  - Swelling face [Recovered/Resolved]
  - Dermatitis acneiform [Unknown]
  - Diarrhoea [Unknown]
